FAERS Safety Report 15483372 (Version 1)
Quarter: 2018Q4

REPORT INFORMATION
  Report Type: Spontaneous
  Country: US (occurrence: US)
  Receive Date: 20181010
  Receipt Date: 20181010
  Transmission Date: 20190205
  Serious: No
  Sender: FDA-Public Use
  Company Number: US-TARO-2017TAR00877

PATIENT
  Age: 86 Year
  Sex: Female

DRUGS (2)
  1. CETIRIZINE HYDROCHLORIDE (RISING PHARMACEUTICALS) [Suspect]
     Active Substance: CETIRIZINE HYDROCHLORIDE
     Indication: PRURITUS
     Dosage: UNK, ONCE
     Dates: start: 20170620, end: 20170620
  2. TRIAMCINOLONE ACETONIDE OINTMENT [Suspect]
     Active Substance: TRIAMCINOLONE ACETONIDE
     Indication: PRURITUS
     Dosage: UNK, 2X/DAY
     Route: 061

REACTIONS (5)
  - Dyspepsia [Recovered/Resolved]
  - Nausea [Recovered/Resolved]
  - Tongue discolouration [Recovered/Resolved]
  - Paraesthesia oral [Recovered/Resolved]
  - Malaise [Recovered/Resolved]

NARRATIVE: CASE EVENT DATE: 20170620
